FAERS Safety Report 17175022 (Version 1)
Quarter: 2019Q4

REPORT INFORMATION
  Report Type: Spontaneous
  Country: US (occurrence: US)
  Receive Date: 20191218
  Receipt Date: 20191218
  Transmission Date: 20200122
  Serious: Yes (Hospitalization)
  Sender: FDA-Public Use
  Company Number: None

PATIENT
  Age: 60 Year
  Sex: Male

DRUGS (7)
  1. CYCLOBENZAPR TAB 10MG [Concomitant]
     Dates: start: 20191202
  2. OXYCOD/APAP TAB 7.5-325 [Concomitant]
     Dates: start: 20191217
  3. VEMLIDY [Suspect]
     Active Substance: TENOFOVIR ALAFENAMIDE FUMARATE
     Indication: HEPATITIS
     Route: 048
     Dates: start: 20190719
  4. ESCITALOPRAM TAB 20MG [Concomitant]
     Dates: start: 20191021
  5. OMEPRAZOLE CAP 40MG [Concomitant]
     Active Substance: OMEPRAZOLE
     Dates: start: 20190530
  6. BUPROPION TAB 150MG SR [Concomitant]
     Dates: start: 20191021
  7. ESCITALOPRAM [Concomitant]
     Active Substance: ESCITALOPRAM OXALATE
     Dates: start: 20190419

REACTIONS (1)
  - Road traffic accident [None]

NARRATIVE: CASE EVENT DATE: 20191218
